FAERS Safety Report 23746062 (Version 1)
Quarter: 2024Q2

REPORT INFORMATION
  Report Type: Spontaneous
  Country: US (occurrence: US)
  Receive Date: 20240416
  Receipt Date: 20240416
  Transmission Date: 20240716
  Serious: No
  Sender: FDA-Public Use
  Company Number: US-TEVA-VS-3173082

PATIENT
  Age: 66 Year
  Sex: Female

DRUGS (9)
  1. AUSTEDO [Suspect]
     Active Substance: DEUTETRABENAZINE
     Indication: Tardive dyskinesia
     Route: 065
  2. Alprazolam Tablet 1 mg [Concomitant]
  3. CLOPIDOGREL [Concomitant]
     Active Substance: CLOPIDOGREL BISULFATE
  4. GABAPENTIN [Concomitant]
     Active Substance: GABAPENTIN
  5. Gemfibrozil tablet 600 mg [Concomitant]
  6. Hydrocodone tablet 10-325 mg [Concomitant]
  7. Januvia tablet 100 mg [Concomitant]
  8. Jardiance tablet 25 mg [Concomitant]
  9. Rosuvastatin Tablet 200 mg [Concomitant]

REACTIONS (1)
  - Dyskinesia [Unknown]
